FAERS Safety Report 5060013-6 (Version None)
Quarter: 2006Q3

REPORT INFORMATION
  Report Type: 
  Country: None (occurrence: None)
  Receive Date: 20060719
  Receipt Date: 20060705
  Transmission Date: 20061208
  Serious: Yes (Death, Hospitalization)
  Sender: FDA-Public Use
  Company Number: 200606IM000367

PATIENT
  Age: 57 Year
  Sex: Female
  Weight: 89.8122 kg

DRUGS (19)
  1. ACTIMMUNE [Suspect]
     Indication: IDIOPATHIC PULMONARY FIBROSIS
     Dosage: SEE IMAGE
     Route: 058
     Dates: start: 20040503, end: 20060619
  2. ACTIMMUNE [Suspect]
     Indication: IDIOPATHIC PULMONARY FIBROSIS
     Dosage: SEE IMAGE
     Route: 058
     Dates: start: 20011008
  3. FUROSEMIDE [Concomitant]
  4. OXYGEN [Concomitant]
  5. PREDNISONE [Concomitant]
  6. GEMFIBROZIL [Concomitant]
  7. ZETIA [Concomitant]
  8. LEXAPRO [Concomitant]
  9. PRILOSEC [Concomitant]
  10. ENALAPRIL MALEATE [Concomitant]
  11. ACETAMINOPHEN [Concomitant]
  12. PERCOCET [Concomitant]
  13. SOMA [Concomitant]
  14. IBUPROFEN [Concomitant]
  15. HUMULIN 70/30 [Concomitant]
  16. ALBUTEROL [Concomitant]
  17. METFORMIN [Concomitant]
  18. POTASSIUM CHLORIDE [Concomitant]
  19. COLACE [Concomitant]

REACTIONS (28)
  - ANXIETY [None]
  - BLOOD GLUCOSE INCREASED [None]
  - BREAST CANCER METASTATIC [None]
  - BREATH SOUNDS ABNORMAL [None]
  - CONDITION AGGRAVATED [None]
  - COUGH [None]
  - CYANOSIS [None]
  - DYSPNOEA [None]
  - FEAR [None]
  - HEADACHE [None]
  - HYPERCAPNIA [None]
  - HYPOKALAEMIA [None]
  - HYPOXIA [None]
  - IDIOPATHIC PULMONARY FIBROSIS [None]
  - METASTASES TO LYMPH NODES [None]
  - MUSCLE SPASMS [None]
  - OEDEMA PERIPHERAL [None]
  - OXYGEN SATURATION DECREASED [None]
  - PAIN [None]
  - PITTING OEDEMA [None]
  - PLASMACYTOSIS [None]
  - PROGESTERONE RECEPTOR ASSAY POSITIVE [None]
  - RALES [None]
  - RESPIRATORY DEPRESSION [None]
  - RESPIRATORY FAILURE [None]
  - RESPIRATORY RATE INCREASED [None]
  - SPINAL COMPRESSION FRACTURE [None]
  - WEIGHT DECREASED [None]
